FAERS Safety Report 10364203 (Version 1)
Quarter: 2014Q3

REPORT INFORMATION
  Report Type: Report from Study
  Country: US (occurrence: US)
  Receive Date: 20140806
  Receipt Date: 20140806
  Transmission Date: 20150326
  Serious: Yes (Other)
  Sender: FDA-Public Use
  Company Number: US-ROCHE-1445784

PATIENT
  Sex: Male
  Weight: 31.4 kg

DRUGS (2)
  1. MELATONIN [Concomitant]
     Active Substance: MELATONIN
     Dosage: AT BEDTIME
     Route: 048
  2. NUTROPIN AQ [Suspect]
     Active Substance: SOMATROPIN
     Indication: BODY HEIGHT BELOW NORMAL
     Dosage: INJECTION CARTRIDGE?20 MG/2ML (10/MG/ML)
     Route: 058

REACTIONS (3)
  - Body height below normal [Unknown]
  - Hunger [Unknown]
  - Weight gain poor [Unknown]
